FAERS Safety Report 10307763 (Version 2)
Quarter: 2014Q3

REPORT INFORMATION
  Report Type: Report from Study
  Country: US (occurrence: US)
  Receive Date: 20140716
  Receipt Date: 20140924
  Transmission Date: 20150326
  Serious: Yes (Hospitalization, Other)
  Sender: FDA-Public Use
  Company Number: US-MUNDIPHARMA DS AND PHARMACOVIGILANCE-USA-2014-0115548

PATIENT
  Age: 50 Year
  Sex: Male

DRUGS (3)
  1. OXYCONTIN [Suspect]
     Active Substance: OXYCODONE HYDROCHLORIDE
     Dosage: UNK
     Route: 048
     Dates: start: 2003
  2. OXYCONTIN [Suspect]
     Active Substance: OXYCODONE HYDROCHLORIDE
     Indication: ARTHRITIS
     Dosage: 480 MG, BID
     Route: 048
     Dates: start: 20140308, end: 20140408
  3. OXYCONTIN [Suspect]
     Active Substance: OXYCODONE HYDROCHLORIDE
     Dosage: 400 MG, BID
     Route: 048

REACTIONS (17)
  - Diabetes mellitus [Unknown]
  - Bronchitis [Unknown]
  - Loss of consciousness [Recovered/Resolved]
  - Swelling [Unknown]
  - Pain [Unknown]
  - Cardiac arrest [Recovered/Resolved]
  - Vomiting [Unknown]
  - Weight decreased [Unknown]
  - Pulmonary embolism [Recovered/Resolved]
  - Respiratory arrest [Recovered/Resolved]
  - Drug withdrawal syndrome [Unknown]
  - Urinary incontinence [Unknown]
  - Pancreatitis [Unknown]
  - Cardiac failure [Recovered/Resolved]
  - Faecal incontinence [Unknown]
  - Peripheral embolism [Recovered/Resolved]
  - Heart rate decreased [Unknown]

NARRATIVE: CASE EVENT DATE: 2004
